FAERS Safety Report 7509852-X (Version None)
Quarter: 2011Q2

REPORT INFORMATION
  Report Type: 
  Country: None (occurrence: None)
  Receive Date: 20110527
  Receipt Date: 20110520
  Transmission Date: 20111010
  Serious: Yes (Life-Threatening)
  Sender: FDA-Public Use
  Company Number: B0708005A

PATIENT
  Sex: Male
  Weight: 75 kg

DRUGS (18)
  1. KYTRIL [Concomitant]
     Dosage: 2MG PER DAY
     Route: 048
     Dates: start: 20101119, end: 20101122
  2. RABEPRAZOLE SODIUM [Concomitant]
     Dosage: 1IUAX PER DAY
     Route: 048
     Dates: start: 20101102
  3. SULFAMETHOXAZOLE [Concomitant]
     Dosage: 1IUAX PER DAY
     Route: 048
     Dates: start: 20101102
  4. EURODIN [Concomitant]
     Route: 048
     Dates: start: 20101102
  5. PYRINAZIN [Concomitant]
     Route: 048
     Dates: start: 20101102
  6. DIFLUCAN [Concomitant]
     Dosage: 200MG PER DAY
     Route: 048
     Dates: start: 20101102
  7. AZULENE [Concomitant]
     Route: 002
     Dates: start: 20101102
  8. METHOTREXATE [Concomitant]
     Indication: IMMUNOSUPPRESSION
     Dates: start: 20101126, end: 20101206
  9. TACROLIMUS [Concomitant]
     Indication: IMMUNOSUPPRESSION
     Dosage: 1.3MG PER DAY
     Route: 065
     Dates: start: 20101124
  10. ZOVIRAX [Concomitant]
     Dosage: 1000MG PER DAY
     Route: 048
     Dates: start: 20101119
  11. URSO 250 [Concomitant]
     Dosage: 300MG PER DAY
     Route: 048
     Dates: start: 20101119
  12. LENDORMIN [Concomitant]
     Route: 048
     Dates: start: 20101102
  13. ALKERAN [Suspect]
     Indication: STEM CELL TRANSPLANT
     Dosage: 150MG PER DAY
     Route: 042
     Dates: start: 20101121, end: 20101122
  14. FLUDARA [Concomitant]
     Indication: STEM CELL TRANSPLANT
     Dosage: 36MG PER DAY
     Route: 042
     Dates: start: 20101118, end: 20101122
  15. CYTARABINE [Concomitant]
     Indication: STEM CELL TRANSPLANT
     Dosage: 3500MG PER DAY
     Route: 042
     Dates: start: 20101118, end: 20101120
  16. FUROSEMIDE [Concomitant]
     Route: 048
     Dates: start: 20101119
  17. MAGNESIUM OXIDE [Concomitant]
     Dosage: 3G PER DAY
     Route: 048
     Dates: start: 20101102
  18. ALOSITOL [Concomitant]
     Dosage: 300MG PER DAY
     Route: 048
     Dates: start: 20101102

REACTIONS (6)
  - ALANINE AMINOTRANSFERASE INCREASED [None]
  - BLOOD BILIRUBIN INCREASED [None]
  - ASPARTATE AMINOTRANSFERASE INCREASED [None]
  - ACUTE GRAFT VERSUS HOST DISEASE IN LIVER [None]
  - BLOOD ALKALINE PHOSPHATASE INCREASED [None]
  - GAMMA-GLUTAMYLTRANSFERASE INCREASED [None]
